FAERS Safety Report 25421208 (Version 3)
Quarter: 2025Q3

REPORT INFORMATION
  Report Type: Spontaneous
  Country: EU (occurrence: EU)
  Receive Date: 20250611
  Receipt Date: 20250803
  Transmission Date: 20251021
  Serious: Yes (Hospitalization)
  Sender: ALEXION PHARMACEUTICALS
  Company Number: EU-AstraZeneca-CH-00887058A

PATIENT
  Sex: Female

DRUGS (1)
  1. DAPAGLIFLOZIN [Suspect]
     Active Substance: DAPAGLIFLOZIN
     Indication: Cardiac failure
     Dosage: 10 MILLIGRAM, QD

REACTIONS (5)
  - Cardiac failure [Unknown]
  - Weight increased [Unknown]
  - Blood uric acid increased [Unknown]
  - Acute left ventricular failure [Unknown]
  - Acute myocardial infarction [Unknown]
